FAERS Safety Report 16125330 (Version 4)
Quarter: 2020Q4

REPORT INFORMATION
  Report Type: Report from Study
  Country: BR (occurrence: BR)
  Receive Date: 20190327
  Receipt Date: 20201127
  Transmission Date: 20210113
  Serious: Yes (Hospitalization, Other)
  Sender: FDA-Public Use
  Company Number: PHHY2019BR066516

PATIENT
  Age: 69 Year
  Sex: Female
  Weight: 90 kg

DRUGS (12)
  1. PREDNISONA [Concomitant]
     Active Substance: PREDNISONE
     Indication: ASTHMA
     Dosage: 1 DF, QD
     Route: 048
     Dates: start: 2001
  2. CAPILAREMA [Concomitant]
     Indication: CAPILLARY DISORDER
     Dosage: UNK
     Route: 065
  3. FORASEQ [Suspect]
     Active Substance: BUDESONIDE\FORMOTEROL FUMARATE
     Dosage: UNK, UNKNOWN
     Route: 065
     Dates: start: 200910
  4. AEROLIN [Concomitant]
     Active Substance: ALBUTEROL
     Indication: PRODUCT USED FOR UNKNOWN INDICATION
     Dosage: UNK, UNKNOWN
     Route: 065
  5. FORASEQ [Suspect]
     Active Substance: BUDESONIDE\FORMOTEROL FUMARATE
     Indication: ASTHMA
     Dosage: UNK, BID
     Route: 055
     Dates: start: 2008
  6. FORASEQ [Suspect]
     Active Substance: BUDESONIDE\FORMOTEROL FUMARATE
     Dosage: UNK, UNKNOWN
     Route: 065
     Dates: start: 200910
  7. ALENIA [BUDESONIDE/FORMOTEROL FUMARATE] [Suspect]
     Active Substance: BUDESONIDE\FORMOTEROL FUMARATE
     Indication: PRODUCT USED FOR UNKNOWN INDICATION
     Dosage: UNK
     Route: 065
  8. FLAVONID [Concomitant]
     Indication: LYMPHOEDEMA
     Dosage: UNK UNK, BID
     Route: 048
     Dates: start: 2013
  9. PREDNISONE. [Suspect]
     Active Substance: PREDNISONE
     Indication: PRODUCT USED FOR UNKNOWN INDICATION
     Dosage: UNK UNK, BID
     Route: 065
  10. FORASEQ [Suspect]
     Active Substance: BUDESONIDE\FORMOTEROL FUMARATE
     Dosage: UNK, BID
     Route: 065
  11. LOSARTANA POTASSICA [Concomitant]
     Active Substance: LOSARTAN
     Indication: HYPERTENSION
     Dosage: 1 DF, QD
     Route: 048
     Dates: start: 2008
  12. VENAFLON [Concomitant]
     Indication: POOR PERIPHERAL CIRCULATION
     Dosage: UNK
     Route: 065

REACTIONS (42)
  - Pulmonary embolism [Recovered/Resolved]
  - Memory impairment [Unknown]
  - Wheezing [Unknown]
  - Limb deformity [Not Recovered/Not Resolved]
  - Oedema peripheral [Not Recovered/Not Resolved]
  - Erysipelas [Not Recovered/Not Resolved]
  - Spinal column injury [Unknown]
  - Lymphatic disorder [Not Recovered/Not Resolved]
  - Condition aggravated [Unknown]
  - Muscle rupture [Not Recovered/Not Resolved]
  - Joint injury [Unknown]
  - Malaise [Not Recovered/Not Resolved]
  - Insomnia [Unknown]
  - Lymphoedema [Not Recovered/Not Resolved]
  - Drug dependence [Unknown]
  - Pyrexia [Not Recovered/Not Resolved]
  - Erythema [Unknown]
  - Heart rate [Unknown]
  - Drug ineffective [Not Recovered/Not Resolved]
  - Autoimmune disorder [Unknown]
  - Diabetes mellitus [Unknown]
  - Asthmatic crisis [Not Recovered/Not Resolved]
  - Tracheal pain [Not Recovered/Not Resolved]
  - Localised infection [Not Recovered/Not Resolved]
  - Nervousness [Unknown]
  - Anxiety [Not Recovered/Not Resolved]
  - Cerebrovascular accident [Recovered/Resolved]
  - Blister [Not Recovered/Not Resolved]
  - Muscular weakness [Not Recovered/Not Resolved]
  - Gait disturbance [Not Recovered/Not Resolved]
  - Asthenia [Not Recovered/Not Resolved]
  - Ischaemic stroke [Unknown]
  - Peripheral swelling [Unknown]
  - Lymphorrhoea [Not Recovered/Not Resolved]
  - Weight decreased [Unknown]
  - Dyspnoea [Not Recovered/Not Resolved]
  - Chest pain [Unknown]
  - Illness [Not Recovered/Not Resolved]
  - Tendon rupture [Not Recovered/Not Resolved]
  - Musculoskeletal stiffness [Unknown]
  - Osteoarthritis [Not Recovered/Not Resolved]
  - Depressed mood [Unknown]

NARRATIVE: CASE EVENT DATE: 2013
